FAERS Safety Report 25151300 (Version 2)
Quarter: 2025Q2

REPORT INFORMATION
  Report Type: Spontaneous
  Country: US (occurrence: US)
  Receive Date: 20250402
  Receipt Date: 20250415
  Transmission Date: 20250717
  Serious: Yes (Hospitalization)
  Sender: TEVA
  Company Number: US-TEVA-VS-3314488

PATIENT
  Age: 60 Year
  Sex: Female

DRUGS (3)
  1. LEVOFLOXACIN [Suspect]
     Active Substance: LEVOFLOXACIN
     Indication: Large intestine infection
     Route: 065
  2. METRONIDAZOLE [Suspect]
     Active Substance: METRONIDAZOLE
     Indication: Large intestine infection
     Route: 042
  3. UPADACITINIB [Suspect]
     Active Substance: UPADACITINIB
     Indication: Crohn^s disease
     Route: 065

REACTIONS (7)
  - Drug ineffective [Unknown]
  - Herpes simplex [Recovering/Resolving]
  - Herpes dermatitis [Recovered/Resolved]
  - Pneumoperitoneum [Recovering/Resolving]
  - Ophthalmic herpes simplex [Recovering/Resolving]
  - Herpes simplex colitis [Recovering/Resolving]
  - Intestinal perforation [Recovering/Resolving]
